FAERS Safety Report 4758828-4 (Version None)
Quarter: 2005Q3

REPORT INFORMATION
  Report Type: 
  Country: None (occurrence: None)
  Receive Date: 20050831
  Receipt Date: 20050831
  Transmission Date: 20060218
  Serious: Yes (Other)
  Sender: FDA-Public Use
  Company Number: 3800210000-2005-8007

PATIENT
  Age: 75 Year
  Sex: Female

DRUGS (1)
  1. CHOLETEC [Suspect]

REACTIONS (1)
  - DRUG DISPENSING ERROR [None]
